FAERS Safety Report 6236882-0 (Version None)
Quarter: 2009Q2

REPORT INFORMATION
  Report Type: 
  Country: None (occurrence: None)
  Receive Date: 20090619
  Receipt Date: 20090615
  Transmission Date: 20091009
  Serious: Yes (Hospitalization, Disabling)
  Sender: FDA-Public Use
  Company Number: JP-BAYER-200911160BYL

PATIENT
  Age: 84 Year
  Sex: Female

DRUGS (19)
  1. NEXAVAR [Suspect]
     Indication: RENAL CELL CARCINOMA STAGE IV
     Dosage: UNIT DOSE: 200 MG
     Route: 048
     Dates: start: 20080927, end: 20081003
  2. NEXAVAR [Suspect]
     Dosage: UNIT DOSE: 200 MG
     Route: 048
     Dates: start: 20081004, end: 20081012
  3. NEXAVAR [Suspect]
     Dosage: UNIT DOSE: 200 MG
     Route: 048
     Dates: start: 20081012, end: 20081025
  4. NEXAVAR [Suspect]
     Dosage: UNIT DOSE: 200 MG
     Route: 048
     Dates: start: 20081030, end: 20081112
  5. NEXAVAR [Suspect]
     Dosage: TOTAL DAILY DOSE: 400 MG  UNIT DOSE: 200 MG
     Route: 048
     Dates: start: 20090512
  6. NEXAVAR [Suspect]
     Dosage: UNIT DOSE: 200 MG
     Route: 048
     Dates: start: 20081113, end: 20090408
  7. OLMETEC [Concomitant]
     Route: 048
     Dates: start: 20080101
  8. CIMETIPARL [Concomitant]
     Route: 048
     Dates: start: 20080524
  9. NORVASC [Concomitant]
     Route: 048
     Dates: start: 20080924, end: 20081209
  10. PASTARON [Concomitant]
     Indication: PROPHYLAXIS
     Route: 061
     Dates: start: 20080924
  11. NAUZELIN [Concomitant]
     Route: 048
     Dates: start: 20080924
  12. MECALMIN [Concomitant]
     Route: 048
     Dates: start: 20080924
  13. GASLON N_OD [Concomitant]
     Route: 048
     Dates: start: 20080924
  14. CHOREI-TO [Concomitant]
     Indication: DYSURIA
     Route: 048
     Dates: start: 20080925
  15. CHOREI-TO [Concomitant]
     Route: 048
     Dates: start: 20081112
  16. LIPITOR [Concomitant]
     Indication: HYPERLIPIDAEMIA
     Route: 048
     Dates: start: 20081029
  17. DEXALTIN [Concomitant]
     Route: 049
     Dates: start: 20081223
  18. CORINAEL L [Concomitant]
     Route: 048
     Dates: start: 20081210
  19. CALBLOCK [Concomitant]
     Route: 048
     Dates: start: 20081210

REACTIONS (5)
  - CEREBRAL HAEMORRHAGE [None]
  - GLOSSITIS [None]
  - POLYCYTHAEMIA [None]
  - RASH [None]
  - STOMATITIS [None]
